FAERS Safety Report 19777746 (Version 2)
Quarter: 2021Q3

REPORT INFORMATION
  Report Type: Spontaneous
  Country: US (occurrence: US)
  Receive Date: 20210902
  Receipt Date: 20210927
  Transmission Date: 20211014
  Serious: No
  Sender: FDA-Public Use
  Company Number: US-GLAXOSMITHKLINE-US2021180801

PATIENT
  Sex: Female

DRUGS (1)
  1. FLUTICASONE PROPIONATE+SALMETEROL XINAFOATE [Suspect]
     Active Substance: FLUTICASONE PROPIONATE\SALMETEROL XINAFOATE
     Indication: PRODUCT USED FOR UNKNOWN INDICATION
     Dosage: UNK 250/50MCG
     Route: 055
     Dates: start: 20210811

REACTIONS (5)
  - Drug ineffective [Unknown]
  - Throat clearing [Unknown]
  - Productive cough [Unknown]
  - Cough [Unknown]
  - Therapeutic product effect incomplete [Unknown]
